FAERS Safety Report 6323293-2 (Version None)
Quarter: 2009Q3

REPORT INFORMATION
  Report Type: 
  Country: None (occurrence: None)
  Receive Date: 20090818
  Receipt Date: 20090320
  Transmission Date: 20100115
  Serious: Yes (Hospitalization)
  Sender: FDA-Public Use
  Company Number: MEDI-0007867(0)

PATIENT
  Age: 1 Month
  Sex: Male
  Weight: 2.8939 kg

DRUGS (1)
  1. SYNAGIS [Suspect]
     Indication: RESPIRATORY SYNCYTIAL VIRUS INFECTION
     Dates: start: 20081207, end: 20081207

REACTIONS (6)
  - APNOEA [None]
  - CYANOSIS [None]
  - DYSPNOEA [None]
  - NASAL CONGESTION [None]
  - RESPIRATORY DISTRESS [None]
  - RESPIRATORY SYNCYTIAL VIRUS INFECTION [None]
